FAERS Safety Report 23842657 (Version 2)
Quarter: 2024Q2

REPORT INFORMATION
  Report Type: Spontaneous
  Country: AU (occurrence: AU)
  Receive Date: 20240510
  Receipt Date: 20240617
  Transmission Date: 20240716
  Serious: Yes (Other)
  Sender: FDA-Public Use
  Company Number: AU-HALEON-2172299

PATIENT
  Sex: Female

DRUGS (2)
  1. ACETAMINOPHEN [Suspect]
     Active Substance: ACETAMINOPHEN
     Indication: Product used for unknown indication
  2. ACETAMINOPHEN [Suspect]
     Active Substance: ACETAMINOPHEN

REACTIONS (3)
  - Choking [Unknown]
  - Vomiting [Unknown]
  - Recalled product administered [Unknown]
